FAERS Safety Report 11824701 (Version 1)
Quarter: 2015Q4

REPORT INFORMATION
  Report Type: Spontaneous
  Country: GB (occurrence: GB)
  Receive Date: 20151210
  Receipt Date: 20151210
  Transmission Date: 20160305
  Serious: Yes (Life-Threatening, Other)
  Sender: FDA-Public Use
  Company Number: GB-TEVA-614485ACC

PATIENT
  Age: 59 Year
  Sex: Male

DRUGS (11)
  1. G-CSF [Concomitant]
     Active Substance: GRANULOCYTE COLONY-STIMULATING FACTOR NOS
     Indication: AGRANULOCYTOSIS
  2. LORAZEPAM. [Concomitant]
     Active Substance: LORAZEPAM
     Indication: SCHIZOPHRENIA
  3. ZOPICLONE [Concomitant]
     Active Substance: ZOPICLONE
     Indication: SCHIZOPHRENIA
     Dosage: 3.75-7.5 MG NOCTE WHEN NEEDED
  4. VINCRISTINE [Suspect]
     Active Substance: VINCRISTINE
  5. RITUXIMAB [Suspect]
     Active Substance: RITUXIMAB
     Indication: DIFFUSE LARGE B-CELL LYMPHOMA
     Dates: start: 20150826
  6. ZAPONEX [Suspect]
     Active Substance: CLOZAPINE
     Indication: SCHIZOPHRENIA
     Route: 048
     Dates: start: 20050922, end: 201508
  7. DOXORUBICIN [Suspect]
     Active Substance: DOXORUBICIN
  8. CYCLOPHOSPHAMIDE. [Suspect]
     Active Substance: CYCLOPHOSPHAMIDE
  9. OLANZAPINE. [Concomitant]
     Active Substance: OLANZAPINE
     Indication: SCHIZOPHRENIA
     Dosage: 20 MILLIGRAM DAILY;
  10. PREDNISOLONE. [Suspect]
     Active Substance: PREDNISOLONE
  11. ZAPONEX [Suspect]
     Active Substance: CLOZAPINE
     Indication: SCHIZOPHRENIA
     Route: 048
     Dates: start: 20151030

REACTIONS (12)
  - Contraindicated drug administered [Not Recovered/Not Resolved]
  - Anaemia [Recovering/Resolving]
  - Diffuse large B-cell lymphoma [Not Recovered/Not Resolved]
  - Leukopenia [Recovered/Resolved]
  - Neutrophil count increased [Not Recovered/Not Resolved]
  - Pancytopenia [Recovered/Resolved]
  - Platelet count decreased [Recovered/Resolved]
  - Haemoglobin decreased [Not Recovered/Not Resolved]
  - Neutropenia [Recovered/Resolved]
  - Drug monitoring procedure incorrectly performed [Recovered/Resolved]
  - Agranulocytosis [Recovered/Resolved]
  - Neutrophil count decreased [Recovered/Resolved]

NARRATIVE: CASE EVENT DATE: 20150602
